FAERS Safety Report 6310913-1 (Version None)
Quarter: 2009Q3

REPORT INFORMATION
  Report Type: 
  Country: None (occurrence: None)
  Receive Date: 20090812
  Receipt Date: 20090731
  Transmission Date: 20100115
  Serious: Yes (Life-Threatening)
  Sender: FDA-Public Use
  Company Number: 2007-02872

PATIENT
  Age: 58 Year
  Sex: Male
  Weight: 69 kg

DRUGS (17)
  1. VELCADE [Suspect]
     Indication: MULTIPLE MYELOMA
     Dosage: 2.2 MG, INTRAVENOUS
     Route: 042
     Dates: start: 20070703, end: 20070727
  2. DECADRON [Suspect]
  3. TASMOLIN (BIPERIDEN) [Concomitant]
  4. LULLAN (PEROSPIRONE HYDROCHLORIDE) [Concomitant]
  5. PENFILL N (INSULIN HUMAN INJECTION, ISOPHANE) [Concomitant]
  6. PENFILL R (INSULIN HUMAN) [Concomitant]
  7. LORAZEPAM [Concomitant]
  8. LITHIUM CARBONATE [Concomitant]
  9. NITRAZEPAM [Concomitant]
  10. RHYTHMY (RILMAZAFONE) [Concomitant]
  11. ALOSENN (TARAXACUM OFFICINALE, ACHILLEA, SENNA LEAF, RUBIA ROOT TINCTU [Concomitant]
  12. OMEPRAZOLE [Concomitant]
  13. SULFAMETHOXAZOLE AND TRIMETHOPRIM [Concomitant]
  14. ALLOPURINOL [Concomitant]
  15. MAGNESIUM OXIDE (MAGNESIUM OXIDE) [Concomitant]
  16. ITRACONAZOLE [Concomitant]
  17. FUNGUARD (NIKETHAMIDE, BENZYLPENICILLIN SODIUM, CINEOLE, GUAIFENESIN, [Concomitant]

REACTIONS (3)
  - FUNGAL INFECTION [None]
  - ROAD TRAFFIC ACCIDENT [None]
  - VARICELLA [None]
